FAERS Safety Report 7808787-2 (Version None)
Quarter: 2011Q4

REPORT INFORMATION
  Report Type: 
  Country: None (occurrence: None)
  Receive Date: 20111012
  Receipt Date: 20110928
  Transmission Date: 20120403
  Serious: Yes (Other)
  Sender: FDA-Public Use
  Company Number: PHHY2011MX86959

PATIENT
  Sex: Female

DRUGS (2)
  1. NORVASC [Concomitant]
     Indication: HYPERTENSION
     Dosage: ONE BY DAY
  2. RASILEZ HCT [Suspect]
     Indication: HYPERTENSION
     Dosage: 150/12.5 ONCE BY DAY
     Dates: start: 20110709

REACTIONS (2)
  - HYPERTENSIVE CRISIS [None]
  - DRUG INEFFECTIVE [None]
